FAERS Safety Report 13124371 (Version 3)
Quarter: 2017Q1

REPORT INFORMATION
  Report Type: Spontaneous
  Country: JP (occurrence: JP)
  Receive Date: 20170118
  Receipt Date: 20170314
  Transmission Date: 20170428
  Serious: Yes (Death, Other)
  Sender: FDA-Public Use
  Company Number: JP-ROCHE-1881081

PATIENT
  Age: 74 Year
  Sex: Female
  Weight: 61 kg

DRUGS (7)
  1. AVASTIN [Suspect]
     Active Substance: BEVACIZUMAB
     Indication: BREAST CANCER
     Route: 041
     Dates: start: 20140407, end: 20140407
  2. DECADRON [Concomitant]
     Active Substance: DEXAMETHASONE
     Indication: BREAST CANCER
     Route: 041
     Dates: start: 20140407, end: 20140407
  3. GRAN [Suspect]
     Active Substance: FILGRASTIM
     Indication: ADVERSE EVENT
     Route: 041
     Dates: start: 20140414, end: 20140414
  4. METRONIDAZOLE. [Concomitant]
     Active Substance: METRONIDAZOLE
     Route: 003
  5. ZANTAC [Concomitant]
     Active Substance: RANITIDINE HYDROCHLORIDE
     Indication: PREMEDICATION
     Route: 041
     Dates: start: 20140407, end: 20140407
  6. TAXOL [Suspect]
     Active Substance: PACLITAXEL
     Indication: BREAST CANCER
     Route: 041
     Dates: start: 20140407, end: 20140407
  7. POLARAMINE [Concomitant]
     Active Substance: DEXCHLORPHENIRAMINE MALEATE
     Indication: PREMEDICATION
     Route: 041
     Dates: start: 20140407, end: 20140407

REACTIONS (4)
  - White blood cell count decreased [Unknown]
  - Death [Fatal]
  - Neutrophil count decreased [Unknown]
  - Dementia [Unknown]

NARRATIVE: CASE EVENT DATE: 20140414
